FAERS Safety Report 8872292 (Version 2)
Quarter: 2012Q4

REPORT INFORMATION
  Report Type: 
  Country: US (occurrence: US)
  Receive Date: 20121029
  Receipt Date: 20121109
  Transmission Date: 20130627
  Serious: Yes (Hospitalization)
  Sender: FDA-Public Use
  Company Number: US-NAPPMUNDI-USA-2012-0095132

PATIENT
  Age: 46 Year
  Sex: Female

DRUGS (1)
  1. BUTRANS [Suspect]
     Indication: NECK PAIN
     Dosage: 20 mcg/hr, see text
     Route: 062
     Dates: start: 201205, end: 201209

REACTIONS (1)
  - Diabetes mellitus [Unknown]
